FAERS Safety Report 8311403-7 (Version None)
Quarter: 2012Q2

REPORT INFORMATION
  Report Type: 
  Country: None (occurrence: None)
  Receive Date: 20120425
  Receipt Date: 20110928
  Transmission Date: 20120825
  Serious: No
  Sender: FDA-Public Use
  Company Number: US-MYLANLABS-2011S1020487

PATIENT
  Sex: Female

DRUGS (9)
  1. MULTAQ [Concomitant]
     Indication: ATRIAL FIBRILLATION
  2. COREG [Concomitant]
     Indication: ATRIAL FIBRILLATION
  3. POTASSIUM CHLORIDE [Concomitant]
  4. IPRATROPIUM BROMIDE AND ALBUTEROL SULFATE [Suspect]
     Indication: CHRONIC OBSTRUCTIVE PULMONARY DISEASE
     Route: 055
  5. LEVOTHYROXINE SODIUM [Concomitant]
     Indication: HYPOTHYROIDISM
  6. IPRATROPIUM BROMIDE AND ALBUTEROL SULFATE [Suspect]
     Route: 055
  7. VALSARTAN [Concomitant]
     Indication: BLOOD PRESSURE INCREASED
  8. WARFARIN SODIUM [Concomitant]
     Dosage: 5MG X 2 AND 2.5MG X 5 (WEEKLY)
  9. NEXIUM [Concomitant]
     Indication: GASTROOESOPHAGEAL REFLUX DISEASE

REACTIONS (1)
  - RASH GENERALISED [None]
